FAERS Safety Report 23925189 (Version 1)
Quarter: 2024Q2

REPORT INFORMATION
  Report Type: Spontaneous
  Country: US (occurrence: None)
  Receive Date: 20240531
  Receipt Date: 20240531
  Transmission Date: 20240716
  Serious: No
  Sender: FDA-Public Use
  Company Number: None

PATIENT

DRUGS (2)
  1. ZOSYN [Suspect]
     Active Substance: PIPERACILLIN SODIUM\TAZOBACTAM SODIUM
  2. MYXREDLIN [Suspect]
     Active Substance: INSULIN HUMAN

REACTIONS (7)
  - Product label confusion [None]
  - Product packaging confusion [None]
  - Product barcode issue [None]
  - Product dispensing error [None]
  - Product dispensing error [None]
  - Wrong product administered [None]
  - Wrong product stored [None]
